FAERS Safety Report 4658800-9 (Version None)
Quarter: 2005Q2

REPORT INFORMATION
  Report Type: 
  Country: None (occurrence: None)
  Receive Date: 20050510
  Receipt Date: 20050510
  Transmission Date: 20051028
  Serious: Yes (Hospitalization, Other)
  Sender: FDA-Public Use
  Company Number: None

PATIENT
  Sex: Male
  Weight: 74.5 kg

DRUGS (10)
  1. GEMCITABINE [Suspect]
     Dosage: 1500 MG/M2 IV OVER 150 MIN Q WK X 3 EVERY 4 WEEKS
     Route: 042
     Dates: start: 20050321
  2. ASPIRIN [Concomitant]
  3. ATENOLOL [Concomitant]
  4. ATIVAN [Concomitant]
  5. HUMALOG [Concomitant]
  6. MOROPHINE SULFATE IMMEDIATE RELEASE [Concomitant]
  7. MORPHINE SULFATE [Concomitant]
  8. PAXIL [Concomitant]
  9. SENEKOT STOOL SOFTNER [Concomitant]
  10. ZOCOR [Concomitant]

REACTIONS (11)
  - CELLULITIS [None]
  - COMPUTERISED TOMOGRAM ABNORMAL [None]
  - CONFUSIONAL STATE [None]
  - CONSTIPATION [None]
  - DYSKINESIA [None]
  - HALLUCINATION [None]
  - MENTAL STATUS CHANGES [None]
  - MOUTH ULCERATION [None]
  - NEUTROPENIA [None]
  - PANCYTOPENIA [None]
  - THROMBOCYTOPENIA [None]
